FAERS Safety Report 20507537 (Version 1)
Quarter: 2022Q1

REPORT INFORMATION
  Report Type: Spontaneous
  Country: US (occurrence: None)
  Receive Date: 20220222
  Receipt Date: 20220222
  Transmission Date: 20220424
  Serious: Yes (Hospitalization)
  Sender: FDA-Public Use
  Company Number: None

PATIENT
  Age: 46 Year
  Sex: Female
  Weight: 72.57 kg

DRUGS (1)
  1. MIRENA [Suspect]
     Active Substance: LEVONORGESTREL
     Indication: Product used for unknown indication

REACTIONS (10)
  - Palpitations [None]
  - Heart rate increased [None]
  - Hypertension [None]
  - Feeling abnormal [None]
  - Dissociation [None]
  - Ear pain [None]
  - Vertigo [None]
  - Vision blurred [None]
  - Cyst [None]
  - Lymphoma [None]

NARRATIVE: CASE EVENT DATE: 20201220
